FAERS Safety Report 26028813 (Version 1)
Quarter: 2025Q4

REPORT INFORMATION
  Report Type: Spontaneous
  Country: AU (occurrence: AU)
  Receive Date: 20251112
  Receipt Date: 20251112
  Transmission Date: 20260118
  Serious: Yes (Other)
  Sender: ASCEND THERAPEUTICS US, LLC
  Company Number: AU-Ascend Therapeutics US, LLC-2188363

PATIENT
  Age: 51 Year
  Sex: Male

DRUGS (3)
  1. ANDROGEL [Suspect]
     Active Substance: TESTOSTERONE
     Indication: Product used for unknown indication
  2. TESTOSTERONE [Suspect]
     Active Substance: TESTOSTERONE
  3. MELANOTAN II [Suspect]
     Active Substance: MELANOTAN II

REACTIONS (1)
  - Renal artery thrombosis [Unknown]
